FAERS Safety Report 13667249 (Version 1)
Quarter: 2017Q2

REPORT INFORMATION
  Report Type: Report from Study
  Country: US (occurrence: US)
  Receive Date: 20170619
  Receipt Date: 20170619
  Transmission Date: 20170830
  Serious: Yes (Death)
  Sender: FDA-Public Use
  Company Number: US-ROCHE-1895282

PATIENT
  Age: 7 Year
  Sex: Female

DRUGS (2)
  1. BEVACIZUMAB [Suspect]
     Active Substance: BEVACIZUMAB
     Indication: RADIATION NECROSIS
     Route: 065
  2. OXYGEN HYPERBARIC TREATMENT [Concomitant]

REACTIONS (2)
  - Brain stem stroke [Fatal]
  - Respiratory failure [Fatal]
